FAERS Safety Report 23133886 (Version 1)
Quarter: 2023Q4

REPORT INFORMATION
  Report Type: Other
  Country: GB (occurrence: GB)
  Receive Date: 20231101
  Receipt Date: 20231101
  Transmission Date: 20240110
  Serious: Yes (Life-Threatening, Other)
  Sender: FDA-Public Use
  Company Number: None

PATIENT

DRUGS (2)
  1. MOMETASONE FUROATE [Suspect]
     Active Substance: MOMETASONE FUROATE
     Indication: Product used for unknown indication
     Dosage: UNK
     Route: 065
  2. BETNOVATE [Suspect]
     Active Substance: BETAMETHASONE
     Indication: Eczema
     Dosage: UNK
     Route: 065
     Dates: end: 20221020

REACTIONS (16)
  - Suicidal ideation [Recovering/Resolving]
  - Medication error [Unknown]
  - Skin burning sensation [Recovering/Resolving]
  - Skin weeping [Recovering/Resolving]
  - Scab [Recovering/Resolving]
  - Insomnia [Recovering/Resolving]
  - Feeling cold [Recovering/Resolving]
  - Depression [Recovering/Resolving]
  - Anxiety [Recovering/Resolving]
  - Post-traumatic stress disorder [Recovering/Resolving]
  - Ill-defined disorder [Recovering/Resolving]
  - Ear disorder [Recovering/Resolving]
  - Mobility decreased [Recovering/Resolving]
  - Loss of personal independence in daily activities [Recovering/Resolving]
  - Topical steroid withdrawal reaction [Recovering/Resolving]
  - Pruritus [Recovering/Resolving]
